FAERS Safety Report 22534883 (Version 2)
Quarter: 2024Q1

REPORT INFORMATION
  Report Type: Report from Study
  Country: CA (occurrence: CA)
  Receive Date: 20230608
  Receipt Date: 20240306
  Transmission Date: 20240409
  Serious: Yes (Other)
  Sender: FDA-Public Use
  Company Number: CA-002147023-NVSC2023CA052318

PATIENT
  Age: 53 Year
  Sex: Male

DRUGS (2)
  1. KESIMPTA [Suspect]
     Active Substance: OFATUMUMAB
     Indication: Relapsing-remitting multiple sclerosis
     Dosage: UNK
     Route: 058
     Dates: start: 20230301
  2. KESIMPTA [Suspect]
     Active Substance: OFATUMUMAB
     Dosage: 20 MG, UNKNOWN
     Route: 058

REACTIONS (7)
  - Multiple sclerosis relapse [Unknown]
  - Gastrointestinal disorder [Unknown]
  - Concomitant disease aggravated [Unknown]
  - Influenza like illness [Unknown]
  - Malaise [Unknown]
  - Infection [Unknown]
  - Drug intolerance [Unknown]

NARRATIVE: CASE EVENT DATE: 20230301
